FAERS Safety Report 19727282 (Version 3)
Quarter: 2025Q1

REPORT INFORMATION
  Report Type: Spontaneous
  Country: CA (occurrence: CA)
  Receive Date: 20210819
  Receipt Date: 20250215
  Transmission Date: 20250409
  Serious: Yes (Other)
  Sender: CSL BEHRING
  Company Number: CA-BEH-2021134965

PATIENT
  Age: 7 Year
  Sex: Male
  Weight: 24 kg

DRUGS (3)
  1. PRIVIGEN [Suspect]
     Active Substance: HUMAN IMMUNOGLOBULIN G
     Indication: Kawasaki^s disease
     Dosage: 50 G, OD (1 EVERY 1 DAY)
     Route: 042
  2. PRIVIGEN [Suspect]
     Active Substance: HUMAN IMMUNOGLOBULIN G
     Dosage: UNK, QD
     Route: 042
  3. GAMUNEX [Suspect]
     Active Substance: HUMAN IMMUNOGLOBULIN G
     Indication: Kawasaki^s disease
     Dosage: 24 MILLIGRAM, 1 EVERY 1 DAYS
     Route: 042

REACTIONS (9)
  - Coombs positive haemolytic anaemia [Recovering/Resolving]
  - Low density lipoprotein increased [Recovering/Resolving]
  - Haemolytic anaemia [Recovering/Resolving]
  - Dizziness [Recovering/Resolving]
  - Fatigue [Recovering/Resolving]
  - Haemoglobin decreased [Recovering/Resolving]
  - Haemolysis [Recovering/Resolving]
  - Anti A antibody positive [Recovering/Resolving]
  - Anti-erythrocyte antibody positive [Recovering/Resolving]
